FAERS Safety Report 18128522 (Version 2)
Quarter: 2020Q4

REPORT INFORMATION
  Report Type: Report from Study
  Country: KR (occurrence: KR)
  Receive Date: 20200810
  Receipt Date: 20201005
  Transmission Date: 20210113
  Serious: Yes (Hospitalization)
  Sender: FDA-Public Use
  Company Number: KR-LEO PHARMA-330973

PATIENT
  Age: 44 Year
  Sex: Female
  Weight: 55.5 kg

DRUGS (17)
  1. NORMAL SALINE [Concomitant]
     Active Substance: SODIUM CHLORIDE
     Indication: PRODUCT USED FOR UNKNOWN INDICATION
     Dosage: 100 ML
  2. KERAMIN [Concomitant]
     Indication: PRODUCT USED FOR UNKNOWN INDICATION
     Dosage: 30 MINS AFTER MEALS
  3. LORAVAN [Concomitant]
     Active Substance: LORAZEPAM
     Indication: PRODUCT USED FOR UNKNOWN INDICATION
  4. RESOTRON [Concomitant]
     Indication: PRODUCT USED FOR UNKNOWN INDICATION
  5. MECKOO [Concomitant]
     Indication: PRODUCT USED FOR UNKNOWN INDICATION
  6. ENSTILAR [Suspect]
     Active Substance: BETAMETHASONE DIPROPIONATE\CALCIPOTRIENE HYDRATE
     Indication: PSORIASIS
     Dosage: TOTAL DAILY DOSE: 2G PER DAY
     Route: 061
     Dates: start: 20200612, end: 20200806
  7. ARGOTIN [Concomitant]
     Indication: PRODUCT USED FOR UNKNOWN INDICATION
  8. VASTINAN [Concomitant]
     Active Substance: TRIMETAZIDINE DIHYDROCHLORIDE
     Indication: PRODUCT USED FOR UNKNOWN INDICATION
  9. BEECOM-C [Concomitant]
     Indication: PRODUCT USED FOR UNKNOWN INDICATION
  10. SIGMART [Concomitant]
     Active Substance: NICORANDIL
     Indication: PRODUCT USED FOR UNKNOWN INDICATION
  11. AGIO [Concomitant]
     Indication: PRODUCT USED FOR UNKNOWN INDICATION
     Dosage: GRANULE 6G/PACK (PLANTAGO SEED)
  12. MACPERAN [Concomitant]
     Active Substance: METOCLOPRAMIDE HYDROCHLORIDE
     Indication: PRODUCT USED FOR UNKNOWN INDICATION
  13. HYDROCORTISONE. [Concomitant]
     Active Substance: HYDROCORTISONE
     Indication: PRODUCT USED FOR UNKNOWN INDICATION
  14. MAGNESIUM OXIDE. [Concomitant]
     Active Substance: MAGNESIUM OXIDE
     Indication: PRODUCT USED FOR UNKNOWN INDICATION
  15. NORZYME [Concomitant]
     Indication: PRODUCT USED FOR UNKNOWN INDICATION
  16. ULTRACET [Concomitant]
     Active Substance: ACETAMINOPHEN\TRAMADOL HYDROCHLORIDE
     Indication: PRODUCT USED FOR UNKNOWN INDICATION
     Dosage: ER SEMI TAB. 325/37.5 MG
  17. DUPHALAC-EASY [Concomitant]
     Indication: CONSTIPATION
     Dosage: SYR. 15 ML/PACK (LACRULOSE FOR CONTSIPATION)

REACTIONS (2)
  - Condition aggravated [Recovered/Resolved]
  - Adrenal insufficiency [Recovered/Resolved]

NARRATIVE: CASE EVENT DATE: 20200612
